FAERS Safety Report 9200901 (Version 1)
Quarter: 2013Q1

REPORT INFORMATION
  Report Type: Spontaneous
  Country: GB (occurrence: None)
  Receive Date: 20130327
  Receipt Date: 20130327
  Transmission Date: 20140127
  Serious: Yes (Other)
  Sender: FDA-Public Use
  Company Number: AUR-APL-2013-02453

PATIENT
  Age: 45 Year
  Sex: Female
  Weight: 55.33 kg

DRUGS (3)
  1. SERTRALINE (SERTRALINE) (SERTRALINE) [Suspect]
     Indication: ANXIETY
     Route: 048
     Dates: start: 20130119
  2. IBUPROFEN (IBUPROFEN) [Concomitant]
  3. PARACETAMOL [Concomitant]

REACTIONS (1)
  - Migraine [None]
